FAERS Safety Report 8960874 (Version 2)
Quarter: 2012Q4

REPORT INFORMATION
  Report Type: 
  Country: JP (occurrence: JP)
  Receive Date: 20121212
  Receipt Date: 20121219
  Transmission Date: 20130627
  Serious: Yes (Other)
  Sender: FDA-Public Use
  Company Number: JP-ELI_LILLY_AND_COMPANY-JP201211003156

PATIENT
  Age: 65 Year
  Sex: Male

DRUGS (7)
  1. CYMBALTA [Suspect]
     Indication: DEPRESSION
     Dosage: 20 mg, qd
     Route: 048
     Dates: start: 20110509
  2. CYMBALTA [Suspect]
     Dosage: 30 mg, qd
     Route: 048
     Dates: start: 20120510, end: 20121023
  3. ROHYPNOL [Concomitant]
     Indication: INSOMNIA
     Dosage: 2 mg, prn
     Route: 048
     Dates: start: 20110606
  4. REMERON [Concomitant]
     Indication: DEPRESSION
     Dosage: 15 mg, qd
     Route: 048
     Dates: start: 20110507
  5. REMERON [Concomitant]
     Dosage: 25 mg, UNK
     Route: 048
     Dates: start: 20110509, end: 20110704
  6. LEXOTAN [Concomitant]
     Indication: ANXIETY
     Dosage: 2 mg, qd
     Route: 048
     Dates: start: 20110523, end: 20120925
  7. LEXAPRO [Concomitant]
     Indication: DEPRESSION
     Dosage: 5 mg, qd
     Route: 048
     Dates: start: 20120731, end: 20120827

REACTIONS (2)
  - Rapid eye movements sleep abnormal [Recovering/Resolving]
  - Sleep talking [Recovering/Resolving]
